FAERS Safety Report 19518085 (Version 2)
Quarter: 2025Q1

REPORT INFORMATION
  Report Type: Spontaneous
  Country: US (occurrence: US)
  Receive Date: 20210712
  Receipt Date: 20250115
  Transmission Date: 20250408
  Serious: Yes (Hospitalization, Other)
  Sender: HIKMA
  Company Number: US-HIKMA PHARMACEUTICALS USA INC.-US-H14001-21-03113

PATIENT
  Age: 14 Year
  Sex: Male
  Weight: 122.7 kg

DRUGS (13)
  1. ASPARAGINASE [Suspect]
     Active Substance: ASPARAGINASE
     Indication: Acute lymphocytic leukaemia
     Route: 051
     Dates: start: 20201214
  2. ASPARAGINASE [Suspect]
     Active Substance: ASPARAGINASE
     Route: 051
     Dates: start: 20201225
  3. METHOTREXATE [Suspect]
     Active Substance: METHOTREXATE
     Route: 037
     Dates: start: 20201223
  4. METHOTREXATE [Suspect]
     Active Substance: METHOTREXATE
     Indication: Acute lymphocytic leukaemia
     Route: 042
     Dates: start: 20201214
  5. METHOTREXATE [Suspect]
     Active Substance: METHOTREXATE
     Route: 042
     Dates: start: 20201214
  6. METHOTREXATE [Suspect]
     Active Substance: METHOTREXATE
     Route: 042
     Dates: start: 20201214
  7. METHOTREXATE [Suspect]
     Active Substance: METHOTREXATE
     Route: 037
     Dates: start: 20201223
  8. METHOTREXATE [Suspect]
     Active Substance: METHOTREXATE
     Route: 042
     Dates: start: 20210104
  9. RUXOLITINIB [Suspect]
     Active Substance: RUXOLITINIB
     Indication: Acute lymphocytic leukaemia
     Dosage: DAYS 1-10, 21-25
     Route: 048
     Dates: start: 20201214, end: 20210108
  10. RUXOLITINIB [Suspect]
     Active Substance: RUXOLITINIB
     Dosage: THE LAST DOSE OF INCB018424 PRIOR TO THE SAES
     Route: 048
     Dates: start: 20210108
  11. VINCRISTINE [Suspect]
     Active Substance: VINCRISTINE
     Indication: Acute lymphocytic leukaemia
     Route: 042
     Dates: start: 20201214
  12. VINCRISTINE [Suspect]
     Active Substance: VINCRISTINE
     Route: 042
     Dates: start: 20210104
  13. LOVENOX [Concomitant]
     Active Substance: ENOXAPARIN SODIUM
     Indication: Product used for unknown indication
     Route: 065

REACTIONS (9)
  - Dehydration [Recovered/Resolved]
  - Blood creatinine increased [Recovered/Resolved]
  - Nausea [Unknown]
  - Vomiting [Unknown]
  - Stomatitis [Unknown]
  - Proctitis [Unknown]
  - Oral pain [Unknown]
  - Oropharyngeal pain [Unknown]
  - Proctalgia [Unknown]

NARRATIVE: CASE EVENT DATE: 20210108
